FAERS Safety Report 8259110-3 (Version None)
Quarter: 2012Q2

REPORT INFORMATION
  Report Type: 
  Country: None (occurrence: None)
  Receive Date: 20120404
  Receipt Date: 20120323
  Transmission Date: 20120825
  Serious: Yes (Other)
  Sender: FDA-Public Use
  Company Number: US-SANOFI-AVENTIS-2012SA020587

PATIENT
  Sex: Male

DRUGS (3)
  1. NEXIUM [Concomitant]
  2. ALLEGRA [Suspect]
  3. COUMADIN [Suspect]

REACTIONS (1)
  - THROMBOSIS [None]
